FAERS Safety Report 13774638 (Version 1)
Quarter: 2017Q3

REPORT INFORMATION
  Report Type: Spontaneous
  Country: US (occurrence: US)
  Receive Date: 20170721
  Receipt Date: 20170721
  Transmission Date: 20171127
  Serious: Yes (Hospitalization, Other)
  Sender: FDA-Public Use
  Company Number: US-ROCHE-1965344

PATIENT
  Sex: Male
  Weight: 65.83 kg

DRUGS (7)
  1. CELLCEPT [Suspect]
     Active Substance: MYCOPHENOLATE MOFETIL\MYCOPHENOLATE MOFETIL HYDROCHLORIDE
     Indication: PRODUCT USED FOR UNKNOWN INDICATION
     Route: 065
  2. NEORAL [Concomitant]
     Active Substance: CYCLOSPORINE
     Dosage: 2 CAP DAY, 1 CAP NIGHT
     Route: 065
  3. GELATIN CAPSULE [Concomitant]
     Dosage: TAKES 2 DURING THE DAY AND ONE AT NIGHT
     Route: 048
  4. NEORAL [Concomitant]
     Active Substance: CYCLOSPORINE
     Route: 065
  5. RAPAMUNE [Suspect]
     Active Substance: SIROLIMUS
     Indication: PRODUCT USED FOR UNKNOWN INDICATION
     Route: 065
  6. PREDNISONE. [Concomitant]
     Active Substance: PREDNISONE
     Route: 042
  7. DOXORUBICIN [Concomitant]
     Active Substance: DOXORUBICIN

REACTIONS (5)
  - Dyspnoea [Unknown]
  - Pharyngeal mass [Unknown]
  - Viral infection [Unknown]
  - Lymphoma [Recovered/Resolved]
  - Malaise [Unknown]
